FAERS Safety Report 8905344 (Version 1)
Quarter: 2012Q4

REPORT INFORMATION
  Report Type: 
  Country: CA (occurrence: CA)
  Receive Date: 20121111
  Receipt Date: 20121111
  Transmission Date: 20130627
  Serious: Yes (Death)
  Sender: FDA-Public Use
  Company Number: PHHY2012CA103223

PATIENT
  Age: 56 Year
  Sex: Female

DRUGS (1)
  1. SANDOSTATIN LAR [Suspect]
     Indication: VASCULAR OCCLUSION
     Dosage: 20 mg, once every 4 weeks
     Route: 030
     Dates: start: 20120926, end: 20121026

REACTIONS (1)
  - Death [Fatal]
